FAERS Safety Report 24674377 (Version 1)
Quarter: 2024Q4

REPORT INFORMATION
  Report Type: Spontaneous
  Country: US (occurrence: US)
  Receive Date: 20241128
  Receipt Date: 20241128
  Transmission Date: 20250114
  Serious: No
  Sender: DR REDDYS
  Company Number: US-DRL-USA-SPO/USA/24/0017365

PATIENT
  Sex: Female

DRUGS (1)
  1. HALOETTE [Suspect]
     Active Substance: ETHINYL ESTRADIOL\ETONOGESTREL
     Indication: Contraception
     Dosage: USE FOR 3 WEEKS
     Route: 067
     Dates: start: 20241101

REACTIONS (3)
  - Product use issue [Unknown]
  - Vaginal haemorrhage [Unknown]
  - Product availability issue [Unknown]
